FAERS Safety Report 9213545 (Version 3)
Quarter: 2013Q2

REPORT INFORMATION
  Report Type: Spontaneous
  Country: US (occurrence: US)
  Receive Date: 20130405
  Receipt Date: 20130528
  Transmission Date: 20140414
  Serious: Yes (Hospitalization)
  Sender: FDA-Public Use
  Company Number: US-009507513-1304USA002239

PATIENT
  Age: 61 Year
  Sex: Female

DRUGS (3)
  1. VICTRELIS [Suspect]
     Indication: CHRONIC HEPATITIS C
     Dosage: 800 MG, TID
     Route: 048
     Dates: start: 20130322, end: 20130328
  2. PEGASYS [Suspect]
     Dosage: UNK
     Dates: start: 20130304, end: 20130402
  3. REBETOL [Suspect]
     Dosage: UNK
     Dates: start: 20130304, end: 20130402

REACTIONS (2)
  - Transfusion [Unknown]
  - Haemoglobin decreased [Unknown]
